FAERS Safety Report 23693680 (Version 1)
Quarter: 2024Q2

REPORT INFORMATION
  Report Type: Spontaneous
  Country: DE (occurrence: DE)
  Receive Date: 20240401
  Receipt Date: 20240401
  Transmission Date: 20240716
  Serious: Yes (Hospitalization, Other)
  Sender: FDA-Public Use
  Company Number: DE-BRISTOL-MYERS SQUIBB COMPANY-2024-027296

PATIENT
  Age: 72 Year
  Sex: Male
  Weight: 93 kg

DRUGS (26)
  1. OXALIPLATIN [Suspect]
     Active Substance: OXALIPLATIN
     Indication: Gastric cancer
     Dosage: FORM OF ADMIN: UNKNOWN?ROUTE OF ADMIN: UNK
  2. FLUOROURACIL [Suspect]
     Active Substance: FLUOROURACIL
     Indication: Gastric cancer
  3. OPDIVO [Suspect]
     Active Substance: NIVOLUMAB
     Indication: Oesophageal adenocarcinoma
     Dosage: ROA: INTRAVENOUS
     Dates: start: 20231110, end: 20240214
  4. MACROGOL HEXAL PLUS ELECTROLYTES [Concomitant]
     Indication: Product used for unknown indication
     Dosage: DAILY IF NEEDED?FORM OF ADMIN.- POWDER?ROA: ORAL
  5. AMPHO-MORONAL [Concomitant]
     Active Substance: AMPHOTERICIN B
     Indication: Product used for unknown indication
     Dosage: 10MG 4 TIMES PER DAYS AFTER MEALS AND BEFORE SLEEPING?FORM OF ADMIN.- LOZENGE
  6. BEPANTHEN ANTISEPTIC [Concomitant]
     Indication: Injection site infection
     Dosage: 50MG/G 5MG/G, TWICE PER DAY A THIN LAYER FOR LOCAL PEG INJECTION SITES INFECTION UNDER CHEMOTHERAPY
  7. BEPANTHEN ANTISEPTIC [Concomitant]
     Dosage: 50MG/ML?FORM OF ADMIN.- SOLUTION
     Route: 061
  8. CETIRIZINE HYDROCHLORIDE [Concomitant]
     Active Substance: CETIRIZINE HYDROCHLORIDE
     Indication: Hypersensitivity
     Dosage: FORM OF ADMIN.- FILM-COATED TABLET?ROA: ORAL
  9. NOVAMINSULFONE-RATIOPHARM [Concomitant]
     Indication: Product used for unknown indication
     Dosage: 500 MG/ML DROPS ONLY, WHEN BLOOD PRESSURE SYSTOLIC IS GREATER THAN 110 MMHG - 40 DROPS EVERY 6 HOURS
  10. AMOXICLAV ARISTO [Concomitant]
     Indication: Product used for unknown indication
     Dosage: 875MG/125MG TABLETS IN THE MORNING AND EVENING STARTING ON 20-NOV FOR 5 DAYS?FORM OF ADMIN.- TABLET
  11. CARBOHYDRATES\FATTY ACIDS\MINERALS\PROTEIN\VITAMINS [Concomitant]
     Active Substance: CARBOHYDRATES\FATTY ACIDS\MINERALS\PROTEIN\VITAMINS
     Indication: Oesophageal carcinoma
     Dosage: FRESUBIN 2 KCAL DRINK IN A BOTTLE (HIGH-CALORIE,HIGH-PROTEIN NUTRITIONAL DRINK) 2-3 TIMES A DAY FOR
  12. DEXAMETHASONE [Concomitant]
     Active Substance: DEXAMETHASONE
     Indication: Product used for unknown indication
     Dosage: 8 MG TABLET IN THE MORNING AND EVENING (DAY BEFORE CHEMOTHERAPY)?FORM OF ADMIN.- TABLET
  13. URAPIDIL [Concomitant]
     Active Substance: URAPIDIL
     Indication: Product used for unknown indication
     Dosage: DAILY IF NEEDED?FORM OF ADMIN.- SUSTAINED-RELEASE CAPSULE?ROA: ORAL
  14. FOLIC ACID [Concomitant]
     Active Substance: FOLIC ACID
     Indication: Product used for unknown indication
  15. CARVEDILOL STADA [Concomitant]
     Indication: Product used for unknown indication
     Dosage: 25 MG TABLETS, ONE HALF TABLET IN THE MORNING?FORM OF ADMIN.- TABLET
  16. METOCLOPRAMIDE HYDROCHLORIDE [Concomitant]
     Active Substance: METOCLOPRAMIDE HYDROCHLORIDE
     Indication: Product used for unknown indication
     Dosage: 10 MG TABLETS AS NEEDED (MAX. 3 TIMES PER DAY),?FORM OF ADMIN.- TABLET
  17. METOCLOPRAMIDE HYDROCHLORIDE [Concomitant]
     Active Substance: METOCLOPRAMIDE HYDROCHLORIDE
     Dosage: 10 MG TABLETS AS NEEDED (MAX. 3 TIMES PER DAY)?FORM OF ADMIN.- TABLET?ROA: ORAL
  18. PREDNISOLONE [Concomitant]
     Active Substance: PREDNISOLONE
     Indication: Product used for unknown indication
     Dosage: IN THE MORNING (DAY 1 AND 2 AFTER CHEMOTHERAPY)?FORM OF ADMIN.- TABLET?ROA: ORAL
  19. CARVEDILOL [Concomitant]
     Active Substance: CARVEDILOL
     Indication: Product used for unknown indication
     Dosage: 25 MG TABLETS, ONE HALF TABLET IN THE MORNING?FORM OF ADMIN.- TABLET?ROA: ORAL
  20. ONDANSETRON BLUEFISH [ONDANSETRON] [Concomitant]
     Indication: Product used for unknown indication
     Dosage: 8MG ORALLY DISSOLVING TABLET, AS NEEDED (MAX. TWICE PER DAY)?FORM OF ADMIN.- DISPERSIBLE TABLET?ROA:
  21. ONDANSETRON BLUEFISH [ONDANSETRON] [Concomitant]
     Dosage: 8MG ORALLY DISSOLVING TABLET, AS NEEDED (MAX. TWICE PER DAY)?FORM OF ADMIN.- DISPERSIBLE TABLET
     Route: 048
  22. AMLODIPINE HEXAL [AMLODIPINE] [Concomitant]
     Indication: Product used for unknown indication
     Dosage: 5MG TABLETS IN THE MORNING (PAUSED)?FORM OF ADMIN.- TABLET
  23. FENTANYL TRANSDERMAL SYSTEM [Concomitant]
     Active Substance: FENTANYL
     Indication: Product used for unknown indication
     Dosage: 12 ?G/H (0.0125 MG/HOUR) MATRIX TRANSDERMAL PATCH EVERY 3 DAYS?FORM OF ADMIN.- TRANSDERMAL PATCH?ROA
  24. APREPILOR [Concomitant]
     Indication: Product used for unknown indication
     Dosage: 25MG (DAY ONE) 80MG (DAY 2 AND 3)?FORM OF ADMIN.- CAPSULE, HARD
  25. APREPILOR [Concomitant]
     Dosage: 25MG (DAY ONE) 80MG (DAY 2 AND 3)?FORM OF ADMIN.- CAPSULE, HARD
  26. ABSTRAL [Concomitant]
     Active Substance: FENTANYL CITRATE
     Indication: Product used for unknown indication
     Dosage: DAILY IF REQUIRED?FORM OF ADMIN.- SUBLINGUAL TABLET?ROA: SUBLINGUAL

REACTIONS (7)
  - Pyrexia [Recovered/Resolved]
  - Dyspnoea [Recovered/Resolved]
  - Pneumonitis [Unknown]
  - Hypersensitivity [Recovering/Resolving]
  - Rash [Recovered/Resolved]
  - Infection [Recovering/Resolving]
  - Hyponatraemia [Unknown]

NARRATIVE: CASE EVENT DATE: 20240110
